FAERS Safety Report 17308975 (Version 1)
Quarter: 2020Q1

REPORT INFORMATION
  Report Type: Spontaneous
  Country: US (occurrence: US)
  Receive Date: 20200123
  Receipt Date: 20200123
  Transmission Date: 20200409
  Serious: Yes (Other)
  Sender: FDA-Public Use
  Company Number: US-SA-2020SA013803

PATIENT
  Sex: Female

DRUGS (2)
  1. VENETOCLAX. [Concomitant]
     Active Substance: VENETOCLAX
  2. ELITEK [Suspect]
     Active Substance: RASBURICASE

REACTIONS (5)
  - Haemolysis [Unknown]
  - Nausea [Unknown]
  - Vomiting [Unknown]
  - Hyperbilirubinaemia [Unknown]
  - Anxiety [Unknown]
